FAERS Safety Report 22079314 (Version 1)
Quarter: 2023Q1

REPORT INFORMATION
  Report Type: Spontaneous
  Country: US (occurrence: US)
  Receive Date: 20230309
  Receipt Date: 20230309
  Transmission Date: 20230418
  Serious: Yes (Hospitalization, Other)
  Sender: FDA-Public Use
  Company Number: US-BRISTOL-MYERS SQUIBB COMPANY-2023-032626

PATIENT
  Age: 74 Year
  Sex: Female

DRUGS (3)
  1. ELIQUIS [Suspect]
     Active Substance: APIXABAN
     Indication: Product used for unknown indication
  2. OFEV [Suspect]
     Active Substance: NINTEDANIB
     Indication: Idiopathic pulmonary fibrosis
     Route: 048
     Dates: start: 20220222
  3. PREDNISONE [Suspect]
     Active Substance: PREDNISONE
     Indication: Product used for unknown indication

REACTIONS (25)
  - Internal haemorrhage [Unknown]
  - Vasculitis [Unknown]
  - Phlebitis [Unknown]
  - Urinary tract infection [Unknown]
  - Dyspnoea [Recovering/Resolving]
  - Rash macular [Not Recovered/Not Resolved]
  - Peripheral swelling [Unknown]
  - Dyspepsia [Recovered/Resolved]
  - Diarrhoea [Recovered/Resolved]
  - Contusion [Not Recovered/Not Resolved]
  - Feeling abnormal [Not Recovered/Not Resolved]
  - COVID-19 [Unknown]
  - Migraine [Unknown]
  - Oedema peripheral [Unknown]
  - Skin ulcer [Unknown]
  - Taste disorder [Unknown]
  - Anaemia [Unknown]
  - Alopecia [Unknown]
  - Epigastric discomfort [Unknown]
  - Bowel movement irregularity [Unknown]
  - Fatigue [Not Recovered/Not Resolved]
  - Influenza [Unknown]
  - Vomiting [Unknown]
  - Nausea [Unknown]
  - Decreased appetite [Unknown]

NARRATIVE: CASE EVENT DATE: 20220101
